FAERS Safety Report 4420153-9 (Version None)
Quarter: 2004Q2

REPORT INFORMATION
  Report Type: 
  Country: None (occurrence: None)
  Receive Date: 20040622
  Receipt Date: 20040324
  Transmission Date: 20050107
  Serious: Yes (Other)
  Sender: FDA-Public Use
  Company Number: US-JNJFOC-20040306055

PATIENT
  Age: 48 Year
  Sex: Female

DRUGS (2)
  1. HALDOL [Suspect]
     Indication: DRUG USE FOR UNKNOWN INDICATION
     Dosage: INJECTION
     Dates: start: 19740101, end: 19760101
  2. MELLARIL [Concomitant]

REACTIONS (3)
  - CONVULSION [None]
  - GAIT DISTURBANCE [None]
  - JOINT STIFFNESS [None]
